FAERS Safety Report 5033148-1 (Version None)
Quarter: 2006Q2

REPORT INFORMATION
  Report Type: 
  Country: None (occurrence: None)
  Receive Date: 20060505
  Receipt Date: 20060220
  Transmission Date: 20061013
  Serious: Yes (Other)
  Sender: FDA-Public Use
  Company Number: PHEH2006US02405

PATIENT
  Age: 75 Year
  Sex: Male

DRUGS (4)
  1. DIOVAN HCT [Suspect]
     Indication: HYPERTENSION
     Dosage: SEE IMAGE
  2. HYDROCHLOROTHIAZIDE [Suspect]
     Indication: HYPERTENSION
  3. DILTIAZEM XT (DILTIAZEM) [Concomitant]
  4. K-DUR 10 [Concomitant]

REACTIONS (1)
  - BLOOD POTASSIUM DECREASED [None]
